FAERS Safety Report 12194979 (Version 1)
Quarter: 2016Q1

REPORT INFORMATION
  Report Type: Spontaneous
  Country: US (occurrence: US)
  Receive Date: 20160321
  Receipt Date: 20160321
  Transmission Date: 20160526
  Serious: No
  Sender: FDA-Public Use
  Company Number: US-TARO-2015TAR00949

PATIENT
  Sex: Male

DRUGS (1)
  1. CICLOPIROX SHAMPOO 1% [Suspect]
     Active Substance: CICLOPIROX
     Dosage: UNK UNK, AS NEEDED
     Route: 061
     Dates: start: 2012

REACTIONS (4)
  - Application site pruritus [Not Recovered/Not Resolved]
  - Application site discharge [Not Recovered/Not Resolved]
  - Incorrect drug administration duration [Unknown]
  - Application site acne [Not Recovered/Not Resolved]

NARRATIVE: CASE EVENT DATE: 2012
